FAERS Safety Report 5249829-0 (Version None)
Quarter: 2007Q1

REPORT INFORMATION
  Report Type: 
  Country: None (occurrence: None)
  Receive Date: 20070228
  Receipt Date: 20070124
  Transmission Date: 20070707
  Serious: Yes (Hospitalization)
  Sender: FDA-Public Use
  Company Number: US-AMGEN-US208445

PATIENT
  Sex: Female

DRUGS (2)
  1. ENBREL [Suspect]
     Indication: RHEUMATOID ARTHRITIS
     Route: 058
     Dates: start: 20051122
  2. ARAVA [Concomitant]
     Dates: start: 20061025

REACTIONS (7)
  - BACK PAIN [None]
  - DEHYDRATION [None]
  - DENTAL CARIES [None]
  - INJECTION SITE BRUISING [None]
  - MALAISE [None]
  - TRANSFUSION [None]
  - VIRAL INFECTION [None]
